FAERS Safety Report 10072108 (Version 1)
Quarter: 2014Q2

REPORT INFORMATION
  Report Type: Spontaneous
  Country: US (occurrence: None)
  Receive Date: 20140410
  Receipt Date: 20140410
  Transmission Date: 20141212
  Serious: Yes (Life-Threatening, Hospitalization)
  Sender: FDA-Public Use
  Company Number: None

PATIENT
  Age: 39 Year
  Sex: Female
  Weight: 107 kg

DRUGS (1)
  1. METFORMIN [Suspect]
     Indication: DIABETES MELLITUS
     Route: 048

REACTIONS (6)
  - Renal failure acute [None]
  - Asthenia [None]
  - Respiratory alkalosis [None]
  - Metabolic acidosis [None]
  - Lactic acidosis [None]
  - Mental status changes [None]
